FAERS Safety Report 5759656-3 (Version None)
Quarter: 2008Q2

REPORT INFORMATION
  Report Type: 
  Country: None (occurrence: None)
  Receive Date: 20080605
  Receipt Date: 20080530
  Transmission Date: 20081010
  Serious: Yes (Other)
  Sender: FDA-Public Use
  Company Number: GB-ROCHE-567685

PATIENT
  Sex: Female
  Weight: 85.7 kg

DRUGS (7)
  1. ORLISTAT [Suspect]
     Indication: OBESITY
     Route: 048
     Dates: start: 20071214, end: 20080501
  2. SANDRENA [Concomitant]
  3. CITALOPRAM HYDROBROMIDE [Concomitant]
     Indication: DEPRESSION
     Dosage: DOSAGE IS 20 MG ONE DAY AND 40 MG THE NEXT DAY
     Route: 048
  4. AMITRIPTYLINE HCL [Concomitant]
     Indication: SOMNOLENCE
     Dosage: 10 MG AT NIGHT
     Route: 048
  5. TRAMADOL HCL [Concomitant]
     Indication: PAIN
     Dosage: DOSAGE 50 MG TAKES 1-2 TABLETS UP TO 4 TIMES PER DAY
     Route: 048
  6. LOPERAMIDE HCL [Concomitant]
     Indication: IRRITABLE BOWEL SYNDROME
     Route: 048
  7. SIMVASTATIN [Concomitant]
     Route: 048

REACTIONS (1)
  - TYPE 2 DIABETES MELLITUS [None]
